FAERS Safety Report 17534596 (Version 2)
Quarter: 2020Q1

REPORT INFORMATION
  Report Type: Spontaneous
  Country: US (occurrence: US)
  Receive Date: 20200312
  Receipt Date: 20200318
  Transmission Date: 20200409
  Serious: Yes (Other)
  Sender: FDA-Public Use
  Company Number: US-PFIZER INC-2020105939

PATIENT
  Age: 49 Year
  Sex: Female
  Weight: 82 kg

DRUGS (3)
  1. ZOLOFT [Suspect]
     Active Substance: SERTRALINE HYDROCHLORIDE
     Indication: BLOOD PRESSURE INCREASED
     Dosage: 25 MG, 1X/DAY (IN THE EVENING)
     Dates: start: 20200120
  2. ZOLOFT [Suspect]
     Active Substance: SERTRALINE HYDROCHLORIDE
     Indication: ANXIETY
  3. SERTRALINE HCL [Suspect]
     Active Substance: SERTRALINE HYDROCHLORIDE
     Indication: ANXIETY
     Dosage: 25 MG, 1X/DAY
     Dates: start: 20200120

REACTIONS (4)
  - Hypertension [Not Recovered/Not Resolved]
  - Product dose omission [Unknown]
  - Dizziness [Unknown]
  - Intentional product misuse [Unknown]

NARRATIVE: CASE EVENT DATE: 2020
